FAERS Safety Report 6919709-0 (Version None)
Quarter: 2010Q3

REPORT INFORMATION
  Report Type: 
  Country: None (occurrence: None)
  Receive Date: 20100811
  Receipt Date: 20100603
  Transmission Date: 20110219
  Serious: Yes (Hospitalization)
  Sender: FDA-Public Use
  Company Number: US-BRISTOL-MYERS SQUIBB COMPANY-15110828

PATIENT
  Age: 7 Decade
  Sex: Male

DRUGS (1)
  1. IXEMPRA KIT [Suspect]
     Indication: PROSTATE CANCER METASTATIC
     Dosage: RECEIVED 2ND DOSE ON 10-MAY-2010.  DOSE REDUCED TO 32MG/M2
     Route: 042
     Dates: start: 20100101

REACTIONS (2)
  - ASTHENIA [None]
  - NEUROPATHY PERIPHERAL [None]
